FAERS Safety Report 6820998-1 (Version None)
Quarter: 2010Q3

REPORT INFORMATION
  Report Type: 
  Country: None (occurrence: None)
  Receive Date: 20100707
  Receipt Date: 20071130
  Transmission Date: 20110219
  Serious: No
  Sender: FDA-Public Use
  Company Number: US-PFIZER INC-2007079079

PATIENT
  Age: 51 Year
  Sex: Female
  Weight: 104.33 kg

DRUGS (2)
  1. ZOLOFT [Suspect]
  2. CHANTIX [Interacting]
     Indication: SMOKING CESSATION THERAPY
     Route: 048
     Dates: start: 20070527, end: 20070630

REACTIONS (11)
  - ANXIETY [None]
  - BALANCE DISORDER [None]
  - DECREASED INTEREST [None]
  - DEPRESSION [None]
  - DRUG INTERACTION [None]
  - FATIGUE [None]
  - FEELING ABNORMAL [None]
  - LETHARGY [None]
  - NAUSEA [None]
  - PANIC ATTACK [None]
  - SENSORY DISTURBANCE [None]
